FAERS Safety Report 10038556 (Version 2)
Quarter: 2014Q2

REPORT INFORMATION
  Report Type: Spontaneous
  Country: US (occurrence: US)
  Receive Date: 20140326
  Receipt Date: 20140422
  Transmission Date: 20141212
  Serious: No
  Sender: FDA-Public Use
  Company Number: US-009507513-1403USA008617

PATIENT
  Age: 42 Year
  Sex: Female
  Weight: 61.22 kg

DRUGS (1)
  1. VICTRELIS [Suspect]
     Indication: CHRONIC HEPATITIS C
     Dosage: 800 MG, TID, 12 CAPSULES DAILY
     Route: 048
     Dates: start: 20140226, end: 20140325

REACTIONS (1)
  - Dyspepsia [Recovered/Resolved]
